FAERS Safety Report 7161083-1 (Version None)
Quarter: 2010Q4

REPORT INFORMATION
  Report Type: 
  Country: None (occurrence: None)
  Receive Date: 20101215
  Receipt Date: 20101208
  Transmission Date: 20110411
  Serious: Yes (Life-Threatening, Hospitalization, Other)
  Sender: FDA-Public Use
  Company Number: FI-BIOGENIDEC-2010BI039827

PATIENT
  Age: 33 Year
  Sex: Female

DRUGS (7)
  1. TYSABRI [Suspect]
     Indication: RELAPSING-REMITTING MULTIPLE SCLEROSIS
     Route: 042
     Dates: start: 20090406
  2. EMSELEX [Concomitant]
  3. BACLOFEN [Concomitant]
  4. AMANTADINE HCL [Concomitant]
  5. CITALOPRAM HYDROBROMIDE [Concomitant]
  6. DIANE NOVA [Concomitant]
  7. SALBUTAMOL [Concomitant]
     Route: 055

REACTIONS (2)
  - JUGULAR VEIN THROMBOSIS [None]
  - SUBCLAVIAN VEIN THROMBOSIS [None]
